FAERS Safety Report 14658378 (Version 7)
Quarter: 2020Q2

REPORT INFORMATION
  Report Type: Report from Study
  Country: US (occurrence: US)
  Receive Date: 20180320
  Receipt Date: 20200403
  Transmission Date: 20200713
  Serious: Yes (Death, Life-Threatening, Hospitalization, Other)
  Sender: FDA-Public Use
  Company Number: PHHO2017US011520

PATIENT
  Age: 63 Year
  Sex: Male
  Weight: 61.3 kg

DRUGS (28)
  1. PREDNISONE TABLETS USP [Suspect]
     Active Substance: PREDNISONE
     Dosage: 25 MG, QD
     Route: 048
     Dates: start: 20170901
  2. PREDNISONE TABLETS USP [Suspect]
     Active Substance: PREDNISONE
     Dosage: 55 MG
     Route: 048
     Dates: start: 20170805
  3. PREDNISONE TABLETS USP [Suspect]
     Active Substance: PREDNISONE
     Dosage: 15 MG, QD
     Route: 048
     Dates: start: 20170917
  4. PREDNISONE TABLETS USP [Suspect]
     Active Substance: PREDNISONE
     Dosage: 12.5 MG, QD
     Route: 048
     Dates: start: 20170926
  5. PREDNISONE TABLETS USP [Suspect]
     Active Substance: PREDNISONE
     Dosage: 2 MG, QD
     Route: 048
     Dates: start: 20171030
  6. TACROLIMUS. [Concomitant]
     Active Substance: TACROLIMUS
     Indication: IMMUNOSUPPRESSION
     Dosage: UNK
     Route: 065
     Dates: start: 20170514
  7. ELECTROLYTES NOS [Concomitant]
     Active Substance: ELECTROLYTES NOS
     Indication: ELECTROLYTE IMBALANCE
     Dosage: UNK
     Route: 065
  8. PREDNISONE TABLETS USP [Suspect]
     Active Substance: PREDNISONE
     Dosage: LAST TAPERED TO 60 MG AM/10 MG PM
     Route: 048
     Dates: start: 20170629
  9. MYCOPHENOLATE MOFETIL. [Concomitant]
     Active Substance: MYCOPHENOLATE MOFETIL
     Indication: IMMUNOSUPPRESSION
     Dosage: 1 G, Q8H
     Route: 042
     Dates: start: 20170528
  10. PLATELETS [Concomitant]
     Active Substance: HUMAN PLATELET, ALLOGENIC
     Indication: PLATELET COUNT DECREASED
     Dosage: UNK
     Route: 042
     Dates: start: 20170801, end: 20170801
  11. INC424A [Suspect]
     Active Substance: RUXOLITINIB
     Indication: GRAFT VERSUS HOST DISEASE IN GASTROINTESTINAL TRACT
     Dosage: 5 MG, BID
     Route: 048
     Dates: start: 20170630, end: 20170705
  12. PREDNISONE TABLETS USP [Suspect]
     Active Substance: PREDNISONE
     Dosage: 1 MG, QD
     Route: 048
     Dates: start: 20171104
  13. RED BLOOD CELLS [Concomitant]
     Active Substance: HUMAN RED BLOOD CELL
     Indication: HAEMATURIA
     Dosage: UNK
     Route: 042
     Dates: start: 20170801, end: 20170801
  14. MYCOPHENOLATE MOFETIL. [Concomitant]
     Active Substance: MYCOPHENOLATE MOFETIL
     Indication: GRAFT VERSUS HOST DISEASE
  15. INC424A [Suspect]
     Active Substance: RUXOLITINIB
     Dosage: 5 MG, BID
     Route: 048
     Dates: start: 20170718, end: 20170802
  16. INC424A [Suspect]
     Active Substance: RUXOLITINIB
     Dosage: 5 MG, QD
     Route: 048
     Dates: start: 20170803, end: 20180308
  17. METHYLPREDNISOLONE ACETATE. [Suspect]
     Active Substance: METHYLPREDNISOLONE ACETATE
     Indication: GRAFT VERSUS HOST DISEASE IN GASTROINTESTINAL TRACT
     Dosage: 100 MG, BID
     Route: 042
     Dates: start: 20170630
  18. PREDNISONE TABLETS USP [Suspect]
     Active Substance: PREDNISONE
     Indication: GRAFT VERSUS HOST DISEASE IN GASTROINTESTINAL TRACT
     Dosage: UNK
     Route: 048
  19. PREDNISONE TABLETS USP [Suspect]
     Active Substance: PREDNISONE
     Dosage: 50 MG, QD
     Route: 048
     Dates: start: 20170812
  20. TACROLIMUS. [Concomitant]
     Active Substance: TACROLIMUS
     Indication: GRAFT VERSUS HOST DISEASE
  21. INC424A [Suspect]
     Active Substance: RUXOLITINIB
     Dosage: 10 MG, BID
     Route: 048
     Dates: start: 20170706, end: 20170717
  22. PREDNISONE TABLETS USP [Suspect]
     Active Substance: PREDNISONE
     Dosage: 20 MG, QD
     Route: 048
     Dates: start: 20170910
  23. FILGRASTIM [Concomitant]
     Active Substance: FILGRASTIM
     Indication: PRODUCT USED FOR UNKNOWN INDICATION
     Dosage: UNK
     Route: 065
  24. ISAVUCONAZOLE [Concomitant]
     Active Substance: ISAVUCONAZOLE
     Indication: PROPHYLAXIS
     Dosage: UNK
     Route: 065
     Dates: start: 20170606
  25. PREDNISONE TABLETS USP [Suspect]
     Active Substance: PREDNISONE
     Dosage: 35 MG
     Route: 048
     Dates: start: 20170729
  26. PREDNISONE TABLETS USP [Suspect]
     Active Substance: PREDNISONE
     Dosage: 5 MG AM, 50 MG PM
     Route: 048
     Dates: start: 20170810
  27. PREDNISONE TABLETS USP [Suspect]
     Active Substance: PREDNISONE
     Dosage: 12 MG, QD
     Route: 048
     Dates: start: 20171004
  28. BUDESONIDE. [Concomitant]
     Active Substance: BUDESONIDE
     Indication: PRODUCT USED FOR UNKNOWN INDICATION
     Dosage: UNK
     Route: 065

REACTIONS (8)
  - Pneumonia [Recovered/Resolved]
  - Transitional cell carcinoma [Not Recovered/Not Resolved]
  - Respiratory failure [Fatal]
  - Pneumatosis intestinalis [Recovered/Resolved]
  - Pyrexia [Recovered/Resolved]
  - Respiratory failure [Recovered/Resolved]
  - Pyrexia [Recovered/Resolved]
  - Device related infection [Recovered/Resolved]

NARRATIVE: CASE EVENT DATE: 20170731
